FAERS Safety Report 23749106 (Version 1)
Quarter: 2024Q2

REPORT INFORMATION
  Report Type: Spontaneous
  Country: US (occurrence: None)
  Receive Date: 20240416
  Receipt Date: 20240416
  Transmission Date: 20240716
  Serious: Yes (Life-Threatening)
  Sender: FDA-Public Use
  Company Number: None

PATIENT
  Age: 68 Year
  Sex: Male
  Weight: 87.1 kg

DRUGS (1)
  1. ABECMA [Suspect]
     Active Substance: IDECABTAGENE VICLEUCEL
     Indication: Plasma cell myeloma
     Dosage: OTHER FREQUENCY : ONCE;?
     Dates: start: 20240221, end: 20240221

REACTIONS (8)
  - Cytokine release syndrome [None]
  - Immune effector cell-associated neurotoxicity syndrome [None]
  - Cytopenia [None]
  - Renal tubular necrosis [None]
  - Acute kidney injury [None]
  - Hypophagia [None]
  - Oedema peripheral [None]
  - Physical deconditioning [None]

NARRATIVE: CASE EVENT DATE: 20240221
